FAERS Safety Report 21642489 (Version 3)
Quarter: 2023Q1

REPORT INFORMATION
  Report Type: Report from Study
  Country: US (occurrence: US)
  Receive Date: 20221125
  Receipt Date: 20230203
  Transmission Date: 20230418
  Serious: No
  Sender: FDA-Public Use
  Company Number: US-BRISTOL-MYERS SQUIBB COMPANY-2022-143007

PATIENT
  Age: 59 Year
  Sex: Female
  Weight: 102.05 kg

DRUGS (2)
  1. REVLIMID [Suspect]
     Active Substance: LENALIDOMIDE
     Indication: Plasma cell myeloma
     Dosage: FREQUENCY: DAILY 1-21, 7 DAYS OFF?ONGOING
     Route: 048
     Dates: start: 20211012
  2. REVLIMID [Suspect]
     Active Substance: LENALIDOMIDE
     Dosage: FREQUENCY: DAILY 1-21 Q 28 DAYS ?ONGOING
     Route: 048
     Dates: start: 20211001

REACTIONS (5)
  - Nasopharyngitis [Recovering/Resolving]
  - Sinusitis [Recovering/Resolving]
  - Chills [Recovering/Resolving]
  - Hot flush [Recovering/Resolving]
  - Vitamin D decreased [Unknown]

NARRATIVE: CASE EVENT DATE: 20230130
